FAERS Safety Report 6214888-5 (Version None)
Quarter: 2009Q2

REPORT INFORMATION
  Report Type: 
  Country: None (occurrence: None)
  Receive Date: 20090604
  Receipt Date: 20090522
  Transmission Date: 20091009
  Serious: Yes (Hospitalization)
  Sender: FDA-Public Use
  Company Number: US-AVENTIS-200915489GDDC

PATIENT
  Age: 26 Year
  Sex: Female

DRUGS (2)
  1. DESMOPRESSIN ACETATE [Suspect]
     Indication: VON WILLEBRAND'S DISEASE
     Route: 045
  2. DESMOPRESSIN ACETATE [Suspect]
     Route: 042

REACTIONS (4)
  - COMA [None]
  - CONVULSION [None]
  - HAEMOLYSIS [None]
  - HYPONATRAEMIA [None]
